FAERS Safety Report 12705464 (Version 1)
Quarter: 2016Q3

REPORT INFORMATION
  Report Type: Spontaneous
  Country: US (occurrence: None)
  Receive Date: 20160831
  Receipt Date: 20160831
  Transmission Date: 20161109
  Serious: Yes (Hospitalization)
  Sender: FDA-Public Use
  Company Number: None

PATIENT
  Age: 77 Year
  Sex: Female
  Weight: 63.7 kg

DRUGS (2)
  1. RITUXIMAB (MOAB C2B8 ANTI CD20, CHIMERIC) [Suspect]
     Active Substance: RITUXIMAB
     Dates: end: 20160510
  2. BENDAMUSTINE HYDROCHLORIDE. [Suspect]
     Active Substance: BENDAMUSTINE HYDROCHLORIDE
     Dates: end: 20160511

REACTIONS (9)
  - Asthenia [None]
  - Pneumonia [None]
  - Atrial fibrillation [None]
  - Haemoglobin decreased [None]
  - Viral infection [None]
  - Atelectasis [None]
  - Drug intolerance [None]
  - Oxygen saturation decreased [None]
  - Pancytopenia [None]

NARRATIVE: CASE EVENT DATE: 20160612
